FAERS Safety Report 25937999 (Version 1)
Quarter: 2025Q4

REPORT INFORMATION
  Report Type: Other
  Country: GB (occurrence: GB)
  Receive Date: 20251018
  Receipt Date: 20251018
  Transmission Date: 20260118
  Serious: Yes (Other)
  Sender: MACLEODS
  Company Number: GB-MHRA-TPP13416054C4834372YC1760082966553

PATIENT

DRUGS (2)
  1. VARENICLINE [Suspect]
     Active Substance: VARENICLINE
     Indication: Product used for unknown indication
     Route: 065
     Dates: start: 20251010
  2. PROPRANOLOL [Concomitant]
     Active Substance: PROPRANOLOL HYDROCHLORIDE
     Indication: Product used for unknown indication
     Dosage: TAKE ONE TABLET 2-3  TIMES/DAY
     Route: 065
     Dates: start: 20240321

REACTIONS (2)
  - Essential hypertension [Recovered/Resolved]
  - Headache [Recovered/Resolved]
